FAERS Safety Report 4292172-7 (Version None)
Quarter: 2004Q1

REPORT INFORMATION
  Report Type: 
  Country: None (occurrence: None)
  Receive Date: 20040211
  Receipt Date: 20031230
  Transmission Date: 20041129
  Serious: Yes (Hospitalization)
  Sender: FDA-Public Use
  Company Number: US-GLAXOSMITHKLINE-A0490842A

PATIENT
  Age: 9 Year
  Sex: Female

DRUGS (1)
  1. LAMICTAL [Suspect]
     Indication: EPILEPSY
     Dosage: 12.5MG TWICE PER DAY
     Route: 048
     Dates: start: 20031213, end: 20031227

REACTIONS (5)
  - CONVULSION [None]
  - DRUG INEFFECTIVE [None]
  - HEADACHE [None]
  - PYREXIA [None]
  - RASH [None]
